FAERS Safety Report 18619117 (Version 1)
Quarter: 2020Q4

REPORT INFORMATION
  Report Type: Spontaneous
  Country: US (occurrence: US)
  Receive Date: 20201215
  Receipt Date: 20201215
  Transmission Date: 20210114
  Serious: Yes (Death)
  Sender: FDA-Public Use
  Company Number: US-ROCHE-2733318

PATIENT
  Age: 88 Year
  Sex: Male

DRUGS (1)
  1. ESBRIET [Suspect]
     Active Substance: PIRFENIDONE
     Indication: IDIOPATHIC PULMONARY FIBROSIS
     Dosage: 3 TABS, TID, ONGOING: NO
     Route: 048
     Dates: start: 20190704, end: 20201212

REACTIONS (1)
  - Death [Fatal]

NARRATIVE: CASE EVENT DATE: 20201212
